FAERS Safety Report 4418592-5 (Version None)
Quarter: 2004Q3

REPORT INFORMATION
  Report Type: 
  Country: None (occurrence: None)
  Receive Date: 20040809
  Receipt Date: 20021107
  Transmission Date: 20050211
  Serious: No
  Sender: FDA-Public Use
  Company Number: US-GLAXOSMITHKLINE-A0386011A

PATIENT
  Age: 33 Year
  Sex: Male

DRUGS (2)
  1. PAXIL [Suspect]
     Dosage: 10MG UNKNOWN
     Dates: end: 20021101
  2. SINUS MEDICATION [Concomitant]

REACTIONS (2)
  - DIZZINESS [None]
  - DRUG WITHDRAWAL SYNDROME [None]
